FAERS Safety Report 23519637 (Version 3)
Quarter: 2024Q2

REPORT INFORMATION
  Report Type: Spontaneous
  Country: US (occurrence: US)
  Receive Date: 20240213
  Receipt Date: 20240506
  Transmission Date: 20240715
  Serious: No
  Sender: FDA-Public Use
  Company Number: US-SANOFI-01937995

PATIENT
  Age: 60 Year
  Sex: Female

DRUGS (1)
  1. ADMELOG [Suspect]
     Active Substance: INSULIN LISPRO
     Indication: Type 1 diabetes mellitus
     Dosage: 10 IU, TID (ABOUT 10 UNITS THROUGHOUT THE DAY; 3 UNITS AT LUNCH + 4 UNITS AT DINNER)

REACTIONS (3)
  - Blood glucose increased [Recovered/Resolved]
  - Incorrect dose administered [Recovered/Resolved]
  - Device operational issue [Unknown]

NARRATIVE: CASE EVENT DATE: 20240101
